FAERS Safety Report 6286883-1 (Version None)
Quarter: 2009Q3

REPORT INFORMATION
  Report Type: 
  Country: None (occurrence: None)
  Receive Date: 20090728
  Receipt Date: 20090724
  Transmission Date: 20100115
  Serious: Yes (Hospitalization, Other)
  Sender: FDA-Public Use
  Company Number: US-MERCK-0907USA02878

PATIENT
  Age: 48 Year
  Sex: Male

DRUGS (4)
  1. VYTORIN [Suspect]
     Indication: BLOOD CHOLESTEROL
     Route: 048
     Dates: start: 20060101, end: 20081001
  2. VYTORIN [Suspect]
     Route: 048
     Dates: start: 20090101
  3. VYTORIN [Suspect]
     Indication: HYPERLIPIDAEMIA
     Route: 048
     Dates: start: 20060101, end: 20081001
  4. VYTORIN [Suspect]
     Route: 048
     Dates: start: 20090101

REACTIONS (1)
  - HEPATIC DYSPLASIA [None]
